FAERS Safety Report 6554845-2 (Version None)
Quarter: 2010Q1

REPORT INFORMATION
  Report Type: 
  Country: None (occurrence: None)
  Receive Date: 20100125
  Receipt Date: 20100113
  Transmission Date: 20100710
  Serious: Yes (Hospitalization, Disabling)
  Sender: FDA-Public Use
  Company Number: 93708

PATIENT
  Age: 76 Year
  Sex: Male

DRUGS (1)
  1. CLINDAMYCIN PHOSPHATE [Suspect]
     Indication: WOUND INFECTION
     Dosage: 300MG/3X/PER DAY

REACTIONS (9)
  - BLISTER [None]
  - DRY GANGRENE [None]
  - FOOT AMPUTATION [None]
  - NECROSIS [None]
  - OSTEOMYELITIS [None]
  - POSTOPERATIVE WOUND COMPLICATION [None]
  - RASH [None]
  - SKIN ULCER [None]
  - VASCULITIS [None]
